FAERS Safety Report 5200066-5 (Version None)
Quarter: 2007Q1

REPORT INFORMATION
  Report Type: 
  Country: None (occurrence: None)
  Receive Date: 20070105
  Receipt Date: 20061226
  Transmission Date: 20070707
  Serious: Yes (Hospitalization)
  Sender: FDA-Public Use
  Company Number: FR-JNJFOC-20061206478

PATIENT
  Age: 58 Year
  Sex: Female

DRUGS (6)
  1. EPITOMAX [Suspect]
     Indication: MIGRAINE PROPHYLAXIS
     Route: 048
     Dates: start: 20061015, end: 20061120
  2. EPITOMAX [Suspect]
     Indication: EPILEPSY
     Dosage: GRADUALLY DISCONTINUED FROM 07-NOV-2006 TO 20-NOV-2006
     Route: 048
     Dates: start: 20061015, end: 20061120
  3. FENOFIBRATE [Concomitant]
  4. MAGNESIUM [Concomitant]
  5. OMEPRAZOLE [Concomitant]
  6. CORTANCYL [Concomitant]

REACTIONS (2)
  - CONDITION AGGRAVATED [None]
  - SJOGREN'S SYNDROME [None]
